FAERS Safety Report 7789090-6 (Version None)
Quarter: 2011Q3

REPORT INFORMATION
  Report Type: 
  Country: None (occurrence: None)
  Receive Date: 20110930
  Receipt Date: 20110928
  Transmission Date: 20111222
  Serious: Yes (Other)
  Sender: FDA-Public Use
  Company Number: CN-ABBOTT-11P-035-0858930-00

PATIENT
  Age: 40 Year
  Sex: Male

DRUGS (1)
  1. DEPAKENE [Suspect]
     Indication: BIPOLAR DISORDER
     Dosage: GASTRO-RESISTANT
     Route: 048
     Dates: start: 20110705, end: 20110801

REACTIONS (3)
  - BLOOD BILIRUBIN ABNORMAL [None]
  - ALANINE AMINOTRANSFERASE INCREASED [None]
  - TOOTH INJURY [None]
